FAERS Safety Report 4698428-8 (Version None)
Quarter: 2005Q2

REPORT INFORMATION
  Report Type: 
  Country: None (occurrence: None)
  Receive Date: 20050621
  Receipt Date: 20050608
  Transmission Date: 20051028
  Serious: Yes (Other)
  Sender: FDA-Public Use
  Company Number: USA0506100096

PATIENT
  Age: 34 Year
  Sex: Female
  Weight: 98 kg

DRUGS (4)
  1. CYMBALTA [Suspect]
     Indication: FIBROMYALGIA
     Dosage: 120 MG DAY
     Dates: end: 20050601
  2. PERCOCET [Concomitant]
  3. XANAX [Concomitant]
  4. FLEXERIL [Concomitant]

REACTIONS (8)
  - DISTURBANCE IN ATTENTION [None]
  - DIZZINESS [None]
  - GAIT DISTURBANCE [None]
  - LOSS OF CONSCIOUSNESS [None]
  - PARAESTHESIA [None]
  - ROAD TRAFFIC ACCIDENT [None]
  - TEMPERATURE INTOLERANCE [None]
  - TREMOR [None]
